FAERS Safety Report 23612497 (Version 2)
Quarter: 2025Q4

REPORT INFORMATION
  Report Type: Spontaneous
  Country: US (occurrence: US)
  Receive Date: 20240308
  Receipt Date: 20251008
  Transmission Date: 20260118
  Serious: No
  Sender: SUNOVION
  Company Number: US-MYOVANT SCIENCES GMBH-2024MYSCI0100016

PATIENT
  Age: 70 Year
  Sex: Male

DRUGS (6)
  1. ORGOVYX [Suspect]
     Active Substance: RELUGOLIX
     Indication: Prostate cancer
     Dosage: 360 MILLIGRAM, ONE TIME DOSE
     Route: 048
     Dates: start: 2020, end: 2020
  2. ORGOVYX [Suspect]
     Active Substance: RELUGOLIX
     Dosage: UNKNOWN
  3. ORGOVYX [Suspect]
     Active Substance: RELUGOLIX
     Dosage: 120 MG
     Route: 048
  4. LEVOTHYROXINE [Concomitant]
     Active Substance: LEVOTHYROXINE
     Indication: Thyroid disorder
     Dosage: UNKNOWN
  5. DILTIAZEM [Concomitant]
     Active Substance: DILTIAZEM
     Indication: Blood pressure abnormal
     Dosage: UNKNOWN
  6. IRBESARTAN [Concomitant]
     Active Substance: IRBESARTAN
     Indication: Blood pressure abnormal
     Dosage: UNKNOWN

REACTIONS (3)
  - Contusion [Unknown]
  - Therapy interrupted [Recovered/Resolved]
  - Product distribution issue [Recovered/Resolved]

NARRATIVE: CASE EVENT DATE: 20231230
